FAERS Safety Report 24986693 (Version 1)
Quarter: 2025Q1

REPORT INFORMATION
  Report Type: Spontaneous
  Country: US (occurrence: None)
  Receive Date: 20250219
  Receipt Date: 20250219
  Transmission Date: 20250409
  Serious: Yes (Other)
  Sender: FDA-CTU
  Company Number: None

PATIENT
  Age: 57 Year
  Sex: Female

DRUGS (1)
  1. LEVOFLOXACIN [Suspect]
     Active Substance: LEVOFLOXACIN
     Indication: Sinusitis
     Dosage: OTHER QUANTITY : 7 TABLET(S);?FREQUENCY : DAILY;?
     Route: 048

REACTIONS (12)
  - Joint noise [None]
  - Pain in extremity [None]
  - Lethargy [None]
  - Asthenia [None]
  - Sleep disorder [None]
  - Arthralgia [None]
  - Musculoskeletal stiffness [None]
  - Arthralgia [None]
  - Asthenia [None]
  - Arthralgia [None]
  - Paraesthesia [None]
  - Muscular weakness [None]

NARRATIVE: CASE EVENT DATE: 20240918
